FAERS Safety Report 16849461 (Version 1)
Quarter: 2019Q4

REPORT INFORMATION
  Report Type: Spontaneous
  Country: GB (occurrence: GB)
  Receive Date: 20190924
  Receipt Date: 20190924
  Transmission Date: 20200122
  Serious: No
  Sender: FDA-Public Use
  Company Number: None

PATIENT
  Age: 69 Year
  Sex: Female
  Weight: 65 kg

DRUGS (1)
  1. ALENDRONIC ACID [Suspect]
     Active Substance: ALENDRONIC ACID
     Indication: OSTEOPOROSIS
     Dosage: ?          QUANTITY:1 TABLET(S);?
     Route: 048
     Dates: start: 20190909, end: 20190909

REACTIONS (6)
  - Headache [None]
  - Pain [None]
  - Malaise [None]
  - Influenza like illness [None]
  - Fatigue [None]
  - Musculoskeletal stiffness [None]

NARRATIVE: CASE EVENT DATE: 20190909
